FAERS Safety Report 21207522 (Version 1)
Quarter: 2022Q3

REPORT INFORMATION
  Report Type: Spontaneous
  Country: US (occurrence: US)
  Receive Date: 20220812
  Receipt Date: 20220812
  Transmission Date: 20221027
  Serious: Yes (Hospitalization, Other)
  Sender: FDA-Public Use
  Company Number: US-PFIZER INC-202201053534

PATIENT
  Age: 49 Year
  Sex: Female
  Weight: 90.72 kg

DRUGS (1)
  1. DEPO-ESTRADIOL [Suspect]
     Active Substance: ESTRADIOL CYPIONATE
     Indication: Hormone replacement therapy
     Dosage: 1.25 DOSE UNITS NOT PROVIDED SHOT EVERY THREE WEEKS, FOR 20 YEARS

REACTIONS (8)
  - Blood glucose increased [Recovering/Resolving]
  - Diabetes mellitus [Not Recovered/Not Resolved]
  - Blindness [Unknown]
  - Drug dependence [Not Recovered/Not Resolved]
  - Weight decreased [Unknown]
  - Drug withdrawal syndrome [Not Recovered/Not Resolved]
  - Menopause [Not Recovered/Not Resolved]
  - Migraine [Not Recovered/Not Resolved]

NARRATIVE: CASE EVENT DATE: 20220729
